FAERS Safety Report 8548240-4 (Version None)
Quarter: 2012Q3

REPORT INFORMATION
  Report Type: 
  Country: None (occurrence: None)
  Receive Date: 20120730
  Receipt Date: 20120717
  Transmission Date: 20120928
  Serious: Yes (Hospitalization)
  Sender: FDA-Public Use
  Company Number: BE-009507513-2012SP030929

PATIENT

DRUGS (9)
  1. JANUVIA [Concomitant]
     Dosage: 100 MG, QD
  2. PEG-INTRON [Suspect]
     Indication: HEPATITIS C
     Dosage: 150 MICROGRAM, QW
     Dates: start: 20120424, end: 20120101
  3. REBETOL [Suspect]
     Indication: HEPATITIS C
     Dosage: 1200 MG, QD
     Route: 048
     Dates: start: 20120424, end: 20120101
  4. VASEXTEN [Concomitant]
     Dosage: 20 MG, QD
  5. PEG-INTRON [Suspect]
     Dosage: 120 MICROGRAM, QW
     Dates: start: 20120101
  6. REBETOL [Suspect]
     Dosage: 1000 MG, QD
     Route: 048
     Dates: start: 20120101
  7. NOBITEN [Concomitant]
     Dosage: 5 MG, QD
  8. VALSARTAN AND HYDROCHLOROTHIAZIDE [Concomitant]
     Dosage: 160 MG, QD
  9. GLUCOPHAGE [Concomitant]
     Dosage: 850 MG, QD

REACTIONS (4)
  - WEIGHT DECREASED [None]
  - DECREASED APPETITE [None]
  - TONGUE DISORDER [None]
  - ANAEMIA [None]
